FAERS Safety Report 6334406-0 (Version None)
Quarter: 2009Q3

REPORT INFORMATION
  Report Type: 
  Country: None (occurrence: None)
  Receive Date: 20090831
  Receipt Date: 20090820
  Transmission Date: 20100115
  Serious: Yes (Death)
  Sender: FDA-Public Use
  Company Number: IT-BIOGENIDEC-2009BI027121

PATIENT
  Age: 45 Year
  Sex: Male

DRUGS (1)
  1. AVONEX [Suspect]
     Indication: RELAPSING-REMITTING MULTIPLE SCLEROSIS
     Dates: start: 19980101, end: 20010901

REACTIONS (2)
  - GLIOBLASTOMA MULTIFORME [None]
  - MULTIPLE SCLEROSIS RELAPSE [None]
